FAERS Safety Report 8962146 (Version 1)
Quarter: 2012Q4

REPORT INFORMATION
  Report Type: 
  Country: FR (occurrence: FR)
  Receive Date: 20121212
  Receipt Date: 20121212
  Transmission Date: 20130627
  Serious: Yes (Hospitalization)
  Sender: FDA-Public Use
  Company Number: FR-ASTRAZENECA-2012SE91622

PATIENT
  Age: 87 Year
  Sex: Female

DRUGS (2)
  1. ATACAND [Suspect]
     Route: 048
     Dates: start: 2011
  2. KARDEGIC [Suspect]
     Route: 048
     Dates: end: 201210

REACTIONS (1)
  - Pemphigoid [Unknown]
